FAERS Safety Report 12354526 (Version 1)
Quarter: 2016Q2

REPORT INFORMATION
  Report Type: Spontaneous
  Country: ES (occurrence: ES)
  Receive Date: 20160511
  Receipt Date: 20160511
  Transmission Date: 20160815
  Serious: Yes (Other)
  Sender: FDA-Public Use
  Company Number: ES-GLAXOSMITHKLINE-ES2016061721

PATIENT
  Age: 87 Year
  Sex: Male
  Weight: 64 kg

DRUGS (14)
  1. FOLI-DOCE [Concomitant]
     Indication: ANAEMIA
     Dosage: 1 DF, QD,1 DAILY
     Route: 048
     Dates: start: 201405
  2. AMOXICILLIN. [Concomitant]
     Active Substance: AMOXICILLIN
     Indication: ANTIBIOTIC PROPHYLAXIS
     Dosage: 1 DF, TID, 3 DAILY
     Route: 065
     Dates: start: 20160109, end: 20160118
  3. FOSFOCINA [Concomitant]
     Active Substance: FOSFOMYCIN SODIUM
     Indication: GENITAL INFECTION MALE
     Dosage: 500 MG, BID, 2 DAILY
     Route: 065
     Dates: start: 20160129, end: 20160210
  4. LIZIPAINA [Concomitant]
     Active Substance: BACITRACIN\LYSOZYME HYDROCHLORIDE\PAPAIN
     Indication: OROPHARYNGEAL PAIN
     Dosage: UNK
     Route: 065
     Dates: start: 201601
  5. BOI-K [Concomitant]
     Indication: PROPHYLAXIS
     Dosage: 1 DAILY
     Route: 065
     Dates: start: 20160109, end: 20160229
  6. ZINNAT (CEFUROXIME AXETIL) [Concomitant]
     Indication: TESTICULAR OEDEMA
     Dosage: , 2 DIARIES500 MG, BID
     Route: 065
     Dates: start: 20160229, end: 20160309
  7. ZYLORIC [Concomitant]
     Active Substance: ALLOPURINOL
     Dosage: 100 MG, QD, 1 DAILY
     Route: 048
     Dates: start: 201505
  8. SEGURIL [Concomitant]
     Active Substance: FUROSEMIDE
     Indication: URINARY RETENTION
     Dosage: UNK
     Route: 048
     Dates: start: 201502
  9. EMCONCOR [Concomitant]
     Active Substance: BISOPROLOL FUMARATE
     Indication: CARDIAC FAILURE
     Dosage: 10 MG, QD, 1 DAILY
     Route: 065
     Dates: start: 201502
  10. UROREC [Concomitant]
     Active Substance: SILODOSIN
     Indication: BENIGN PROSTATIC HYPERPLASIA
     Dosage: 8 MG, QD, 1 DAILY
     Route: 048
     Dates: end: 20160317
  11. DUODART [Suspect]
     Active Substance: DUTASTERIDE\TAMSULOSIN
     Indication: URINARY RETENTION
     Dosage: 1 DF, QD, 1 DAILY
     Route: 048
     Dates: start: 20160317
  12. HEMOVAS [Concomitant]
     Dosage: 2 DIARIAS
     Route: 048
     Dates: start: 201001
  13. SEDOTIME [Concomitant]
     Indication: INSOMNIA
     Dosage: 15 MG, QD, 1 DAILY
     Dates: start: 201511
  14. PERMIXON [Concomitant]
     Active Substance: SAW PALMETTO
     Indication: TESTICULAR OEDEMA
     Dosage: 160 MG, UNK, 2 DAILY
     Route: 065
     Dates: start: 20160129, end: 20160209

REACTIONS (5)
  - Gynaecomastia [Not Recovered/Not Resolved]
  - Pruritus [Unknown]
  - Breast mass [Not Recovered/Not Resolved]
  - Breast tenderness [Not Recovered/Not Resolved]
  - Dyspepsia [Unknown]

NARRATIVE: CASE EVENT DATE: 2016
